FAERS Safety Report 5773826-X (Version None)
Quarter: 2008Q2

REPORT INFORMATION
  Report Type: 
  Country: None (occurrence: None)
  Receive Date: 20080616
  Receipt Date: 20080603
  Transmission Date: 20081010
  Serious: Yes (Hospitalization)
  Sender: FDA-Public Use
  Company Number: NSADSS2002025715

PATIENT
  Sex: Male

DRUGS (6)
  1. REMICADE [Suspect]
     Route: 041
  2. REMICADE [Suspect]
     Indication: PSORIATIC ARTHROPATHY
     Route: 041
  3. PLACEBO [Suspect]
     Route: 041
  4. PLACEBO [Suspect]
     Indication: PSORIATIC ARTHROPATHY
     Route: 041
  5. PREDNISOLONE [Concomitant]
  6. IBUROFEN [Concomitant]

REACTIONS (8)
  - C-REACTIVE PROTEIN INCREASED [None]
  - EOSINOPHIL COUNT INCREASED [None]
  - PSORIASIS [None]
  - RED BLOOD CELL COUNT DECREASED [None]
  - RED BLOOD CELL SEDIMENTATION RATE INCREASED [None]
  - TENDON RUPTURE [None]
  - TENDONITIS [None]
  - TRANSAMINASES INCREASED [None]
